FAERS Safety Report 23042011 (Version 2)
Quarter: 2023Q4

REPORT INFORMATION
  Report Type: Report from Study
  Country: CA (occurrence: CA)
  Receive Date: 20231008
  Receipt Date: 20231013
  Transmission Date: 20240109
  Serious: Yes (Hospitalization, Other)
  Sender: FDA-Public Use
  Company Number: CA-SANDOZ-SDZ2023CA017266

PATIENT
  Sex: Female

DRUGS (1)
  1. HYRIMOZ [Suspect]
     Active Substance: ADALIMUMAB-ADAZ
     Indication: Crohn^s disease
     Dosage: 40 MG
     Route: 058
     Dates: start: 20230702

REACTIONS (7)
  - Enteritis [Unknown]
  - Haemorrhage [Unknown]
  - Haemorrhoids [Unknown]
  - Urine abnormality [Unknown]
  - Diarrhoea [Unknown]
  - Infection [Unknown]
  - Patient dissatisfaction with treatment [Unknown]
